FAERS Safety Report 21590692 (Version 1)
Quarter: 2022Q4

REPORT INFORMATION
  Report Type: Spontaneous
  Country: US (occurrence: US)
  Receive Date: 20221114
  Receipt Date: 20221114
  Transmission Date: 20230112
  Serious: No
  Sender: FDA-Public Use
  Company Number: US-TARO PHARMACEUTICALS USA INC.-2021TAR01007

PATIENT

DRUGS (1)
  1. MUPIROCIN [Suspect]
     Active Substance: MUPIROCIN
     Indication: Precancerous condition
     Dosage: BID, TWO TIMES A DAY
     Route: 061

REACTIONS (2)
  - Product use in unapproved indication [Unknown]
  - Arthropod bite [Unknown]
